FAERS Safety Report 5223575-1 (Version None)
Quarter: 2007Q1

REPORT INFORMATION
  Report Type: 
  Country: None (occurrence: None)
  Receive Date: 20070125
  Receipt Date: 20070118
  Transmission Date: 20070707
  Serious: Yes (Life-Threatening, Hospitalization)
  Sender: FDA-Public Use
  Company Number: 2007PV028620

PATIENT
  Age: 68 Year
  Sex: Female
  Weight: 68.4932 kg

DRUGS (7)
  1. BYETTA [Suspect]
     Indication: DIABETES MELLITUS NON-INSULIN-DEPENDENT
     Dosage: SEE IMAGE
     Route: 058
     Dates: start: 20060901, end: 20061101
  2. BYETTA [Suspect]
     Indication: DIABETES MELLITUS NON-INSULIN-DEPENDENT
     Dosage: SEE IMAGE
     Route: 058
     Dates: start: 20061101
  3. METFORMIN HCL [Concomitant]
  4. GLYBURIDE [Concomitant]
  5. AVANDIA [Concomitant]
  6. NITROGLYCERIN [Concomitant]
  7. PROCRIT [Concomitant]

REACTIONS (10)
  - ASTHENIA [None]
  - BLOOD GLUCOSE DECREASED [None]
  - CARDIAC ARREST [None]
  - CORONARY ARTERY OCCLUSION [None]
  - FEELING HOT [None]
  - MALAISE [None]
  - MYOCARDIAL INFARCTION [None]
  - SKIN DISCOLOURATION [None]
  - UNEVALUABLE EVENT [None]
  - WEIGHT DECREASED [None]
